APPROVED DRUG PRODUCT: HYDRALAZINE HYDROCHLORIDE
Active Ingredient: HYDRALAZINE HYDROCHLORIDE
Strength: 10MG
Dosage Form/Route: TABLET;ORAL
Application: A200770 | Product #004
Applicant: STRIDES PHARMA GLOBAL PTE LTD
Approved: Jun 25, 2019 | RLD: No | RS: No | Type: DISCN